FAERS Safety Report 7513134-X (Version None)
Quarter: 2011Q2

REPORT INFORMATION
  Report Type: 
  Country: None (occurrence: None)
  Receive Date: 20110531
  Receipt Date: 20110519
  Transmission Date: 20111010
  Serious: Yes (Hospitalization, Other)
  Sender: FDA-Public Use
  Company Number: US-ASTRAZENECA-2010SE45015

PATIENT
  Age: 779 Month
  Sex: Female

DRUGS (6)
  1. PREDNISONE [Concomitant]
  2. NAPROXEN (ALEVE) [Concomitant]
  3. NEXIUM [Suspect]
     Route: 048
  4. XANAX [Concomitant]
  5. PREVACID [Concomitant]
  6. PRILOSEC [Suspect]
     Route: 048

REACTIONS (11)
  - EATING DISORDER [None]
  - RENAL FAILURE ACUTE [None]
  - CHEST PAIN [None]
  - MYALGIA [None]
  - HOSPITALISATION [None]
  - DRUG DOSE OMISSION [None]
  - WHEEZING [None]
  - DISORIENTATION [None]
  - CONVULSION [None]
  - APHASIA [None]
  - VOMITING [None]
